FAERS Safety Report 8391916 (Version 2)
Quarter: 2015Q2

REPORT INFORMATION
  Report Type: Report from Study
  Country: US (occurrence: US)
  Receive Date: 20120206
  Receipt Date: 20150408
  Transmission Date: 20150821
  Serious: Yes (Death)
  Sender: FDA-Public Use
  Company Number: US-ROCHE-1036744

PATIENT
  Sex: Female

DRUGS (16)
  1. KYTRIL [Concomitant]
     Active Substance: GRANISETRON HYDROCHLORIDE
     Route: 042
  2. HERCEPTIN [Suspect]
     Active Substance: TRASTUZUMAB
     Route: 042
     Dates: start: 20060628
  3. HERCEPTIN [Suspect]
     Active Substance: TRASTUZUMAB
     Route: 042
  4. ZOMETA [Concomitant]
     Active Substance: ZOLEDRONIC ACID
     Route: 042
  5. VICODIN [Concomitant]
     Active Substance: ACETAMINOPHEN\HYDROCODONE BITARTRATE
  6. CELEBREX [Concomitant]
     Active Substance: CELECOXIB
  7. DECADRON [Concomitant]
     Active Substance: DEXAMETHASONE
     Route: 065
  8. BENADRYL [Concomitant]
     Active Substance: DIPHENHYDRAMINE HYDROCHLORIDE
     Route: 042
  9. MORPHINE [Concomitant]
     Active Substance: MORPHINE
  10. HERCEPTIN [Suspect]
     Active Substance: TRASTUZUMAB
     Indication: BREAST CANCER FEMALE
     Route: 042
     Dates: start: 20060621
  11. TAGAMET [Concomitant]
     Active Substance: CIMETIDINE
     Route: 065
  12. TAXOL [Concomitant]
     Active Substance: PACLITAXEL
     Route: 042
  13. CARBOPLATIN. [Concomitant]
     Active Substance: CARBOPLATIN
     Route: 042
  14. ARANESP [Concomitant]
     Active Substance: DARBEPOETIN ALFA
     Route: 058
  15. HERCEPTIN [Suspect]
     Active Substance: TRASTUZUMAB
     Route: 042
  16. BENADRYL [Concomitant]
     Active Substance: DIPHENHYDRAMINE HYDROCHLORIDE
     Route: 042

REACTIONS (5)
  - Death [Fatal]
  - Pain in extremity [Unknown]
  - Vision blurred [Unknown]
  - Back pain [Unknown]
  - Fatigue [Unknown]
